FAERS Safety Report 10010031 (Version 2)
Quarter: 2014Q1

REPORT INFORMATION
  Report Type: Spontaneous
  Country: US (occurrence: US)
  Receive Date: 20140312
  Receipt Date: 20140312
  Transmission Date: 20141002
  Serious: No
  Sender: FDA-Public Use
  Company Number: US-INCYTE CORPORATION-2013IN000629

PATIENT
  Sex: Female

DRUGS (6)
  1. JAKAFI [Suspect]
     Indication: POLYCYTHAEMIA VERA
     Dosage: 10 MG, BID
     Route: 048
     Dates: start: 20120405
  2. PRADAXA [Concomitant]
  3. FOSAMAX [Concomitant]
  4. LEVOXYL [Concomitant]
  5. AMLODIPINE BESYLATE [Concomitant]
  6. MULTIVITAL-M [Concomitant]

REACTIONS (2)
  - Sluggishness [Unknown]
  - Haemoglobin decreased [Unknown]
